FAERS Safety Report 18484467 (Version 20)
Quarter: 2024Q2

REPORT INFORMATION
  Report Type: Other
  Country: DE (occurrence: None)
  Receive Date: 20201110
  Receipt Date: 20240503
  Transmission Date: 20240716
  Serious: Yes (Hospitalization, Other)
  Sender: FDA-Public Use
  Company Number: DE-ROCHE-2116970

PATIENT
  Age: 55 Year
  Sex: Female

DRUGS (20)
  1. OCREVUS [Suspect]
     Active Substance: OCRELIZUMAB
     Indication: Relapsing-remitting multiple sclerosis
     Dosage: 19/APR/2018 RECEIVED THE SECOND INFUSION
     Route: 042
     Dates: start: 20180404
  2. OCREVUS [Suspect]
     Active Substance: OCRELIZUMAB
     Route: 042
     Dates: start: 20181025
  3. OCREVUS [Suspect]
     Active Substance: OCRELIZUMAB
     Route: 042
     Dates: start: 20191107
  4. OCREVUS [Suspect]
     Active Substance: OCRELIZUMAB
     Dosage: SUBSEQUENT DOSE ON 04/MAR/2022
     Route: 042
     Dates: start: 20201105
  5. OCREVUS [Suspect]
     Active Substance: OCRELIZUMAB
     Dosage: 600 MG 168 DAYS
     Route: 042
     Dates: start: 20180404
  6. NABIXIMOLS [Concomitant]
     Active Substance: NABIXIMOLS
     Indication: Muscle spasticity
  7. NABIXIMOLS [Concomitant]
     Active Substance: NABIXIMOLS
     Dosage: 2-12 DF
     Route: 048
  8. IBUPROFEN [Concomitant]
     Active Substance: IBUPROFEN
     Indication: Pain
  9. IBUPROFEN [Concomitant]
     Active Substance: IBUPROFEN
     Route: 048
  10. IBUPROFEN [Concomitant]
     Active Substance: IBUPROFEN
  11. SUMATRIPTAN [Concomitant]
     Active Substance: SUMATRIPTAN
     Indication: Migraine
     Route: 048
  12. LEVOTHYROXINE SODIUM\LIOTHYRONINE SODIUM [Concomitant]
     Active Substance: LEVOTHYROXINE SODIUM\LIOTHYRONINE SODIUM
  13. TOPIRAMATE [Concomitant]
     Active Substance: TOPIRAMATE
     Indication: Migraine
     Route: 048
  14. BENSERAZIDE\LEVODOPA [Concomitant]
     Active Substance: BENSERAZIDE\LEVODOPA
     Indication: Restless legs syndrome
     Dosage: 100/25 DOSE UNIT NOT REPORTED
  15. BENSERAZIDE\LEVODOPA [Concomitant]
     Active Substance: BENSERAZIDE\LEVODOPA
     Route: 048
  16. LEVETIRACETAM [Concomitant]
     Active Substance: LEVETIRACETAM
     Indication: Epilepsy
  17. LEVETIRACETAM [Concomitant]
     Active Substance: LEVETIRACETAM
     Route: 048
  18. LYRICA [Concomitant]
     Active Substance: PREGABALIN
     Indication: Polyneuropathy
     Route: 048
  19. PRAMIPEXOLE [Concomitant]
     Active Substance: PRAMIPEXOLE\PRAMIPEXOLE DIHYDROCHLORIDE
     Indication: Restless legs syndrome
     Route: 048
  20. SPIKEVAX [Concomitant]

REACTIONS (24)
  - Muscle haemorrhage [Recovered/Resolved]
  - Localised infection [Recovered/Resolved]
  - Wrist fracture [Recovered/Resolved]
  - Cystitis noninfective [Recovered/Resolved]
  - Pain in extremity [Recovered/Resolved]
  - Mental disorder [Unknown]
  - Migraine [Recovered/Resolved]
  - Drug ineffective [Unknown]
  - Fatigue [Recovered/Resolved]
  - Influenza like illness [Recovered/Resolved]
  - Vitamin D decreased [Not Recovered/Not Resolved]
  - Laryngitis [Recovered/Resolved]
  - Infection susceptibility increased [Recovered/Resolved]
  - Muscle rupture [Recovered/Resolved]
  - Arthralgia [Recovered/Resolved]
  - Pain in extremity [Not Recovered/Not Resolved]
  - Muscle spasticity [Recovered/Resolved]
  - Foot deformity [Recovered/Resolved]
  - Paraesthesia [Recovering/Resolving]
  - COVID-19 [Recovered/Resolved]
  - Pain [Recovering/Resolving]
  - Muscular weakness [Recovered/Resolved]
  - Sciatica [Not Recovered/Not Resolved]
  - C-reactive protein increased [Recovered/Resolved]

NARRATIVE: CASE EVENT DATE: 20180423
